FAERS Safety Report 9397060 (Version 1)
Quarter: 2013Q3

REPORT INFORMATION
  Report Type: Spontaneous
  Country: US (occurrence: None)
  Receive Date: 20130710
  Receipt Date: 20130710
  Transmission Date: 20140515
  Serious: No
  Sender: FDA-Public Use
  Company Number: None

PATIENT
  Age: 5 Year
  Sex: Male
  Weight: 19.1 kg

DRUGS (2)
  1. TRILEPTAL [Suspect]
     Route: 048
  2. TOPAMAX [Suspect]
     Dosage: 3 CAPS
     Route: 048

REACTIONS (3)
  - No therapeutic response [None]
  - Product substitution issue [None]
  - Therapeutic response unexpected with drug substitution [None]
